FAERS Safety Report 20796413 (Version 1)
Quarter: 2022Q2

REPORT INFORMATION
  Report Type: Spontaneous
  Country: IR (occurrence: IR)
  Receive Date: 20220506
  Receipt Date: 20220506
  Transmission Date: 20220721
  Serious: Yes (Death, Hospitalization, Other)
  Sender: FDA-Public Use
  Company Number: IR-AMNEAL PHARMACEUTICALS-2022-AMRX-01178

PATIENT
  Age: 60 Year
  Sex: Female

DRUGS (2)
  1. ALPRAZOLAM [Suspect]
     Active Substance: ALPRAZOLAM
     Indication: Product used for unknown indication
     Dosage: UNK
     Route: 065
  2. AMPHETAMINE SULFATE [Suspect]
     Active Substance: AMPHETAMINE SULFATE
     Indication: Product used for unknown indication
     Dosage: UNK
     Route: 065

REACTIONS (14)
  - Gastric perforation [Fatal]
  - Sepsis [Fatal]
  - Disseminated intravascular coagulation [Fatal]
  - Renal failure [Fatal]
  - Cardio-respiratory arrest [Fatal]
  - Toxicity to various agents [Fatal]
  - Metabolic encephalopathy [Fatal]
  - Peritonitis [Fatal]
  - Cholecystitis [Fatal]
  - Peptic ulcer [Fatal]
  - Suicide attempt [Fatal]
  - Overdose [Fatal]
  - Bundle branch block [Fatal]
  - Bundle branch block right [Fatal]
